FAERS Safety Report 9164809 (Version 2)
Quarter: 2013Q2

REPORT INFORMATION
  Report Type: Spontaneous
  Country: US (occurrence: None)
  Receive Date: 20130227
  Receipt Date: 20130408
  Transmission Date: 20140414
  Serious: Yes (Other)
  Sender: FDA-Public Use
  Company Number: 1302-244

PATIENT
  Age: 91 Year
  Sex: Male

DRUGS (7)
  1. EYLEA (AFLIBERCEPT) (INJECTION) (AFLIBERCEPT) [Suspect]
     Indication: AGE-RELATED MACULAR DEGENERATION
     Dosage: 0.05, INTRAVITREAL
     Dates: start: 20111229, end: 20120828
  2. SIMVASTATIN [Concomitant]
  3. OMEPRAZOLE [Concomitant]
  4. ACCUPRIL (QUINAPRIL HYDROCHLORIDE) [Concomitant]
  5. VITAMIN C [Concomitant]
  6. ONCE DAILY GARLIC (ALLIUM SATIVUM) [Concomitant]
  7. ICAPS (MINERALS NOS W/VITAMINS NOS) [Concomitant]

REACTIONS (4)
  - Transient ischaemic attack [None]
  - Impaired driving ability [None]
  - Visual pathway disorder [None]
  - Inflammation [None]
